FAERS Safety Report 4508659-5 (Version None)
Quarter: 2004Q4

REPORT INFORMATION
  Report Type: 
  Country: None (occurrence: None)
  Receive Date: 20041123
  Receipt Date: 20040520
  Transmission Date: 20050328
  Serious: No
  Sender: FDA-Public Use
  Company Number: US-GLAXOSMITHKLINE-A0511573A

PATIENT
  Sex: Male

DRUGS (5)
  1. WELLBUTRIN SR [Suspect]
     Indication: MAJOR DEPRESSION
     Dosage: 350MG PER DAY
     Route: 048
  2. BENZODIAZEPAM [Concomitant]
     Indication: ANXIETY
  3. EFFEXOR XR [Concomitant]
  4. BECONASE [Concomitant]
     Indication: SEASONAL ALLERGY
     Route: 045
  5. KLONOPIN [Concomitant]
     Indication: ANXIETY

REACTIONS (3)
  - ANHEDONIA [None]
  - ANXIETY [None]
  - TINNITUS [None]
